FAERS Safety Report 8896187 (Version 3)
Quarter: 2012Q4

REPORT INFORMATION
  Report Type: 
  Country: US (occurrence: US)
  Receive Date: 20121108
  Receipt Date: 20121210
  Transmission Date: 20130627
  Serious: Yes (Hospitalization, Other)
  Sender: FDA-Public Use
  Company Number: US-TEVA-368566USA

PATIENT
  Age: 53 Year
  Sex: Female

DRUGS (16)
  1. CLOZAPINE [Suspect]
     Indication: SCHIZOAFFECTIVE DISORDER
     Route: 048
     Dates: end: 20121024
  2. LUVOX [Suspect]
  3. PROZAC [Suspect]
  4. ARICEPT [Concomitant]
  5. CRESTOR [Concomitant]
  6. TRILEPTAL [Concomitant]
  7. SYNTHROID [Concomitant]
  8. METFORMIN [Concomitant]
  9. ZETIA [Concomitant]
  10. TOPAMAX [Concomitant]
  11. LORAZEPAM [Concomitant]
  12. HALDOL [Concomitant]
  13. REMERON [Concomitant]
  14. COGENTIN [Concomitant]
  15. NEURONTIN [Concomitant]
  16. MIRALAX [Concomitant]

REACTIONS (2)
  - Drug level increased [Recovered/Resolved]
  - Convulsion [Recovered/Resolved]
